FAERS Safety Report 14450601 (Version 1)
Quarter: 2018Q1

REPORT INFORMATION
  Report Type: Other
  Country: DE (occurrence: DE)
  Receive Date: 20180129
  Receipt Date: 20180129
  Transmission Date: 20180509
  Serious: Yes (Hospitalization, Disabling, Other)
  Sender: FDA-Public Use
  Company Number: DE-MACLEODS PHARMACEUTICALS US LTD-MAC2018008860

PATIENT

DRUGS (2)
  1. LEVOFLOXACIN. [Suspect]
     Active Substance: LEVOFLOXACIN
     Indication: BRONCHITIS
     Dosage: 10 X 500MG
     Route: 048
     Dates: start: 201610
  2. LEVOFLOXACIN. [Suspect]
     Active Substance: LEVOFLOXACIN
     Indication: ANTIBIOTIC PROPHYLAXIS
     Dosage: 7 X 500MG
     Route: 048
     Dates: start: 201709

REACTIONS (12)
  - Aphasia [Unknown]
  - Depression [Unknown]
  - Arrhythmia [Unknown]
  - Tendonitis [Unknown]
  - Neuropathy peripheral [Unknown]
  - Joint dislocation [Recovered/Resolved]
  - Impaired work ability [Unknown]
  - Myalgia [Unknown]
  - Visual impairment [Not Recovered/Not Resolved]
  - Panic attack [Unknown]
  - Pain in extremity [Unknown]
  - Tendon pain [Unknown]

NARRATIVE: CASE EVENT DATE: 2016
